FAERS Safety Report 11282446 (Version 2)
Quarter: 2016Q2

REPORT INFORMATION
  Report Type: Report from Study
  Country: GB (occurrence: GB)
  Receive Date: 20150720
  Receipt Date: 20160526
  Transmission Date: 20160815
  Serious: Yes (Other)
  Sender: FDA-Public Use
  Company Number: GB-ROCHE-1607618

PATIENT
  Sex: Male

DRUGS (1)
  1. ESBRIET [Suspect]
     Active Substance: PIRFENIDONE
     Indication: IDIOPATHIC PULMONARY FIBROSIS
     Route: 048

REACTIONS (16)
  - Dyspnoea [Unknown]
  - Erythema [Unknown]
  - Cataract [Unknown]
  - Weight decreased [Unknown]
  - Hypotension [Unknown]
  - Gastrointestinal disorder [Unknown]
  - Gastrooesophageal reflux disease [Not Recovered/Not Resolved]
  - Tinnitus [Recovered/Resolved]
  - Tearfulness [Unknown]
  - Seasonal allergy [Unknown]
  - Chest pain [Unknown]
  - Infection [Unknown]
  - Depressed mood [Unknown]
  - Vertigo [Recovered/Resolved]
  - Hiatus hernia [Unknown]
  - Condition aggravated [Unknown]
